FAERS Safety Report 6091054-8 (Version None)
Quarter: 2009Q1

REPORT INFORMATION
  Report Type: 
  Country: None (occurrence: None)
  Receive Date: 20090225
  Receipt Date: 20090221
  Transmission Date: 20090719
  Serious: No
  Sender: FDA-Public Use
  Company Number: US-JNJFOC-20090205658

PATIENT
  Sex: Male
  Weight: 81.65 kg

DRUGS (3)
  1. FENTANYL TRANSDERMAL SYSTEM [Suspect]
     Indication: BACK PAIN
     Route: 062
  2. VICODIN [Concomitant]
     Indication: PAIN
     Dosage: 10-325 MG TID AS NEEDED
     Route: 048
  3. IBUPROFEN [Concomitant]
     Indication: PAIN
     Route: 048

REACTIONS (6)
  - APPLICATION SITE RASH [None]
  - FEELING OF BODY TEMPERATURE CHANGE [None]
  - INAPPROPRIATE SCHEDULE OF DRUG ADMINISTRATION [None]
  - MUSCLE TWITCHING [None]
  - SLEEP DISORDER [None]
  - WRONG TECHNIQUE IN DRUG USAGE PROCESS [None]
